FAERS Safety Report 8699966 (Version 2)
Quarter: 2014Q1

REPORT INFORMATION
  Report Type: Spontaneous
  Country: FR (occurrence: FR)
  Receive Date: 20120802
  Receipt Date: 20140106
  Transmission Date: 20141002
  Serious: Yes (Other)
  Sender: FDA-Public Use
  Company Number: FR-BAXTER-2012BAX012522

PATIENT
  Age: 14 Year
  Sex: Female

DRUGS (11)
  1. CHLORURE DE SODIUM 0.9% POUR CENT BAXTER, SOLUTION POUR PERFUSION EN P [Suspect]
     Indication: HAEMOPERFUSION
     Dosage: 1 UNIT
     Route: 042
     Dates: start: 20120625, end: 20120625
  2. HEPARINE CHOAY [Suspect]
     Indication: HAEMOPERFUSION
     Dosage: 1  UNIT
     Route: 042
     Dates: start: 20120625, end: 20120625
  3. CALCIUM CHLORURE RENAUDIN [Suspect]
     Indication: HAEMOPERFUSION
     Dosage: 1 UNIT
     Route: 042
     Dates: start: 20120625, end: 20120625
  4. ENALAPRIL [Concomitant]
     Indication: PRODUCT USED FOR UNKNOWN INDICATION
  5. ESOMEPRAZOL [Concomitant]
     Indication: PRODUCT USED FOR UNKNOWN INDICATION
  6. HYDROCORTISONE [Concomitant]
     Indication: PRODUCT USED FOR UNKNOWN INDICATION
  7. HYDROCORTISONE [Concomitant]
  8. BACTRIM [Concomitant]
     Indication: PRODUCT USED FOR UNKNOWN INDICATION
  9. ELISOR [Concomitant]
     Indication: PRODUCT USED FOR UNKNOWN INDICATION
  10. SODIUM BICARBONATE [Concomitant]
     Indication: PRODUCT USED FOR UNKNOWN INDICATION
  11. SERETIDE 125 [Concomitant]
     Indication: PRODUCT USED FOR UNKNOWN INDICATION

REACTIONS (1)
  - Anaphylactic shock [Recovered/Resolved]
